FAERS Safety Report 14258446 (Version 1)
Quarter: 2017Q4

REPORT INFORMATION
  Report Type: Spontaneous
  Country: US (occurrence: US)
  Receive Date: 20171206
  Receipt Date: 20171206
  Transmission Date: 20180321
  Serious: Yes (Other)
  Sender: FDA-Public Use
  Company Number: None

PATIENT
  Age: 84 Year
  Sex: Male
  Weight: 72 kg

DRUGS (4)
  1. PROTONIX [Concomitant]
     Active Substance: PANTOPRAZOLE SODIUM
  2. PAXIL [Concomitant]
     Active Substance: PAROXETINE HYDROCHLORIDE
  3. JANUVIA [Suspect]
     Active Substance: SITAGLIPTIN PHOSPHATE
     Indication: TYPE 2 DIABETES MELLITUS
     Route: 048
  4. MAVIK [Concomitant]
     Active Substance: TRANDOLAPRIL

REACTIONS (7)
  - Feeding disorder [None]
  - Lacrimation increased [None]
  - Dementia [None]
  - Depressed mood [None]
  - Dropped head syndrome [None]
  - Speech disorder [None]
  - Therapy cessation [None]

NARRATIVE: CASE EVENT DATE: 20171115
